FAERS Safety Report 7817541-7 (Version None)
Quarter: 2011Q4

REPORT INFORMATION
  Report Type: 
  Country: None (occurrence: None)
  Receive Date: 20111017
  Receipt Date: 20111007
  Transmission Date: 20120403
  Serious: Yes (Hospitalization)
  Sender: FDA-Public Use
  Company Number: JP-BAYER-2011-019479

PATIENT
  Age: 77 Year
  Sex: Female
  Weight: 68 kg

DRUGS (12)
  1. LACTULOSE [Concomitant]
     Indication: HEPATIC ENCEPHALOPATHY
     Dosage: DAILY DOSE 40 ML
     Route: 048
  2. MAGMITT [Concomitant]
     Indication: HEPATIC ENCEPHALOPATHY
     Dosage: DAILY DOSE 1500 MG
     Route: 048
  3. LASIX [Concomitant]
     Indication: HEPATIC CIRRHOSIS
     Dosage: DAILY DOSE 40 MG
     Route: 048
  4. NEXAVAR [Suspect]
     Indication: HEPATIC NEOPLASM MALIGNANT
     Dosage: 400 MG, BID
     Route: 048
     Dates: start: 20110207
  5. TAURINE [Concomitant]
     Indication: HEPATIC CIRRHOSIS
     Dosage: DAILY DOSE 3 DF
     Route: 048
  6. LIVACT [Concomitant]
     Indication: HEPATIC CIRRHOSIS
     Dosage: 12.45 G, QD
     Route: 048
  7. ALDACTONE [Concomitant]
     Indication: HEPATIC CIRRHOSIS
     Dosage: DAILY DOSE 25 MG
     Route: 048
  8. ENSURE [MINERALS NOS,VITAMINS NOS] [Concomitant]
     Indication: HEPATIC ENCEPHALOPATHY
     Dosage: DAILY DOSE 3 DF
     Route: 048
  9. NEXAVAR [Suspect]
     Dosage: 400 MG, QD
     Route: 048
     Dates: start: 20110222
  10. NEXAVAR [Suspect]
     Dosage: 400 MG, DAILY
     Dates: start: 20110422, end: 20110614
  11. UREPEARL [Concomitant]
     Indication: PROPHYLAXIS
     Dosage: UNK
     Route: 061
     Dates: start: 20110207
  12. LENDEM [Concomitant]
     Indication: INSOMNIA
     Dosage: DAILY DOSE .25 MG
     Route: 048

REACTIONS (2)
  - HEPATIC ENCEPHALOPATHY [None]
  - PALMAR-PLANTAR ERYTHRODYSAESTHESIA SYNDROME [None]
